FAERS Safety Report 5808396-0 (Version None)
Quarter: 2008Q3

REPORT INFORMATION
  Report Type: 
  Country: None (occurrence: None)
  Receive Date: 20080714
  Receipt Date: 20080701
  Transmission Date: 20090109
  Serious: Yes (Other)
  Sender: FDA-Public Use
  Company Number: PHEH2008US05870

PATIENT
  Sex: Female

DRUGS (1)
  1. MIACALCIN [Suspect]
     Dosage: UNK
     Dates: start: 20080625

REACTIONS (6)
  - CHEST DISCOMFORT [None]
  - DYSPHAGIA [None]
  - DYSPNOEA [None]
  - HEADACHE [None]
  - OROPHARYNGEAL PAIN [None]
  - PAIN IN EXTREMITY [None]
